FAERS Safety Report 11282414 (Version 3)
Quarter: 2015Q4

REPORT INFORMATION
  Report Type: Spontaneous
  Country: US (occurrence: US)
  Receive Date: 20150720
  Receipt Date: 20151230
  Transmission Date: 20160304
  Serious: Yes (Disabling, Other)
  Sender: FDA-Public Use
  Company Number: US-009507513-1507USA006948

PATIENT
  Sex: Female

DRUGS (4)
  1. TOUJEO [Concomitant]
     Active Substance: INSULIN GLARGINE
     Dosage: UNK
  2. INVOKANA [Concomitant]
     Active Substance: CANAGLIFLOZIN
     Dosage: UNK
  3. JANUMET [Suspect]
     Active Substance: METFORMIN HYDROCHLORIDE\SITAGLIPTIN PHOSPHATE
     Indication: DIABETES MELLITUS
     Dosage: STRENGTH: 50-1000 (UNITS NOT PROVIDED)
     Route: 048
  4. IMURAN [Concomitant]
     Active Substance: AZATHIOPRINE
     Dosage: UNK

REACTIONS (21)
  - Feeding disorder [Unknown]
  - Systemic lupus erythematosus [Unknown]
  - Musculoskeletal disorder [Unknown]
  - Arthritis [Unknown]
  - Nervousness [Unknown]
  - Gastric infection [Unknown]
  - Fatigue [Unknown]
  - Depression [Unknown]
  - Pruritus [Unknown]
  - Thyroid cancer [Unknown]
  - Lymphadenopathy [Unknown]
  - Blood glucose increased [Unknown]
  - Headache [Unknown]
  - Visual impairment [Unknown]
  - Hepatomegaly [Unknown]
  - Memory impairment [Unknown]
  - Impaired driving ability [Unknown]
  - Dry mouth [Unknown]
  - Pain [Unknown]
  - Weight decreased [Unknown]
  - Muscle twitching [Unknown]
